FAERS Safety Report 5672302-2 (Version None)
Quarter: 2008Q1

REPORT INFORMATION
  Report Type: 
  Country: None (occurrence: None)
  Receive Date: 20080319
  Receipt Date: 20080314
  Transmission Date: 20080703
  Serious: Yes (Hospitalization, Other)
  Sender: FDA-Public Use
  Company Number: PHEH2008US02155

PATIENT
  Age: 57 Year
  Sex: Female
  Weight: 100 kg

DRUGS (9)
  1. TEGRETOL [Suspect]
     Dosage: UNK, UNK
  2. TEGRETOL [Suspect]
     Dates: end: 20040101
  3. METFORMIN HCL [Concomitant]
     Dosage: 1000 MG, QD
     Route: 048
     Dates: start: 20040101
  4. VASOTEC [Concomitant]
     Dosage: 5 MG, QD
     Route: 048
     Dates: start: 20040101
  5. ZANTAC [Concomitant]
     Dosage: 150 MG, BID
     Route: 048
     Dates: start: 20040101
  6. VALIUM [Concomitant]
     Dates: start: 20040101
  7. ELAVIL [Concomitant]
     Dosage: 25 MG, QD
     Route: 048
  8. DILANTIN [Suspect]
     Indication: CONVULSION
     Dosage: 200 MG, BID
     Dates: start: 19930224, end: 20040101
  9. DILANTIN [Suspect]
     Dosage: 100 MG, QD
     Dates: start: 20040101

REACTIONS (3)
  - ATRIAL FIBRILLATION [None]
  - CEREBROVASCULAR ACCIDENT [None]
  - HEART RATE IRREGULAR [None]
